FAERS Safety Report 10374203 (Version 1)
Quarter: 2014Q3

REPORT INFORMATION
  Report Type: Spontaneous
  Country: US (occurrence: US)
  Receive Date: 20140811
  Receipt Date: 20140811
  Transmission Date: 20150326
  Serious: Yes (Other)
  Sender: FDA-Public Use
  Company Number: US-BEH-2014044359

PATIENT
  Sex: Male
  Weight: 117 kg

DRUGS (22)
  1. EPIPEN [Concomitant]
     Active Substance: EPINEPHRINE
  2. LMX [Concomitant]
  3. NORCO [Concomitant]
     Active Substance: ACETAMINOPHEN\HYDROCODONE BITARTRATE
  4. LEVAQUIN [Concomitant]
     Active Substance: LEVOFLOXACIN
  5. OXYGEN. [Concomitant]
     Active Substance: OXYGEN
  6. ASMANEX [Concomitant]
     Active Substance: MOMETASONE FUROATE
  7. MUCOMYST [Concomitant]
     Active Substance: ACETYLCYSTEINE
  8. ZEMAIRA [Suspect]
     Active Substance: .ALPHA.1-PROTEINASE INHIBITOR HUMAN
     Indication: ENZYME ABNORMALITY
     Route: 042
  9. PREDNISONE. [Concomitant]
     Active Substance: PREDNISONE
  10. IPRATROPIUM [Concomitant]
     Active Substance: IPRATROPIUM
  11. SPIRIVA [Concomitant]
     Active Substance: TIOTROPIUM BROMIDE MONOHYDRATE
  12. THEOPHYLLINE [Concomitant]
     Active Substance: THEOPHYLLINE
  13. ZEMAIRA [Suspect]
     Active Substance: .ALPHA.1-PROTEINASE INHIBITOR HUMAN
     Indication: ENZYME ABNORMALITY
     Route: 042
  14. FORADIL [Concomitant]
     Active Substance: FORMOTEROL FUMARATE
  15. XYZAL [Concomitant]
     Active Substance: LEVOCETIRIZINE DIHYDROCHLORIDE
  16. COMBIVENT [Concomitant]
     Active Substance: ALBUTEROL SULFATE\IPRATROPIUM BROMIDE
  17. SINGULAIR [Concomitant]
     Active Substance: MONTELUKAST SODIUM
  18. CEFTIN [Concomitant]
     Active Substance: CEFUROXIME AXETIL
  19. KETOCONAZOLE. [Concomitant]
     Active Substance: KETOCONAZOLE
  20. PEPCID [Concomitant]
     Active Substance: FAMOTIDINE
  21. DIPHENHYDRAMINE [Concomitant]
     Active Substance: DIPHENHYDRAMINE
  22. MORPHINE [Concomitant]
     Active Substance: MORPHINE

REACTIONS (1)
  - Pulmonary mass [Unknown]
